FAERS Safety Report 8393002-4 (Version None)
Quarter: 2012Q2

REPORT INFORMATION
  Report Type: 
  Country: None (occurrence: None)
  Receive Date: 20120529
  Receipt Date: 20120321
  Transmission Date: 20120825
  Serious: No
  Sender: FDA-Public Use
  Company Number: US-ABBOTT-12P-163-0919312-00

PATIENT
  Age: 63 Year
  Sex: Male
  Weight: 81.72 kg

DRUGS (4)
  1. VERAPAMIL HCL [Concomitant]
     Indication: HYPERTENSION
  2. DIVALPROEX SODIUM [Concomitant]
     Indication: CONVULSION
     Dates: start: 20000101
  3. ANDROGEL [Suspect]
     Indication: BLOOD TESTOSTERONE DECREASED
     Dosage: 2 PUMPS DAILY
     Route: 061
     Dates: start: 20120321
  4. QUINAPRIL [Concomitant]
     Indication: HYPERTENSION

REACTIONS (1)
  - DRUG ADMINISTERED AT INAPPROPRIATE SITE [None]
